FAERS Safety Report 9733492 (Version 1)
Quarter: 2013Q4

REPORT INFORMATION
  Report Type: Spontaneous
  Country: US (occurrence: US)
  Receive Date: 20131205
  Receipt Date: 20131205
  Transmission Date: 20140711
  Serious: No
  Sender: FDA-Public Use
  Company Number: US-BAYER-2013-142454

PATIENT
  Age: 28 Year
  Sex: Female

DRUGS (2)
  1. SAFYRAL [Suspect]
     Dosage: UNK
     Dates: start: 2012, end: 2012
  2. YASMIN [Suspect]

REACTIONS (1)
  - Weight increased [None]
